FAERS Safety Report 6590910-1 (Version None)
Quarter: 2010Q1

REPORT INFORMATION
  Report Type: 
  Country: None (occurrence: None)
  Receive Date: 20100219
  Receipt Date: 20100210
  Transmission Date: 20100710
  Serious: Yes (Other)
  Sender: FDA-Public Use
  Company Number: US-ROCHE-684799

PATIENT
  Age: 10 Year
  Sex: Female

DRUGS (7)
  1. OSELTAMIVIR [Suspect]
     Route: 048
     Dates: start: 20090811
  2. OSELTAMIVIR [Suspect]
     Dosage: THROUGH NASOGASTRIC TUBE
     Route: 048
     Dates: start: 20090901
  3. OSELTAMIVIR [Suspect]
     Dosage: WITH NASOGASTRIC TUBE  SUCTION STOPPED FOR 2 HRS AFTER EACH DOSE
     Route: 048
     Dates: start: 20090906, end: 20090909
  4. METHOTREXATE [Concomitant]
  5. MERCAPTOPURINE [Concomitant]
     Route: 048
  6. VANCOMYCIN [Concomitant]
  7. CEFEPIME [Concomitant]

REACTIONS (11)
  - BACTERIAL INFECTION [None]
  - CONTINUOUS HAEMODIAFILTRATION [None]
  - DRUG EFFECT DECREASED [None]
  - HYPOXIA [None]
  - LOBAR PNEUMONIA [None]
  - LUNG DISORDER [None]
  - NEUTROPENIA [None]
  - PATHOGEN RESISTANCE [None]
  - PULMONARY AIR LEAKAGE [None]
  - RESPIRATORY FAILURE [None]
  - SUBCUTANEOUS EMPHYSEMA [None]
